FAERS Safety Report 14236769 (Version 16)
Quarter: 2023Q2

REPORT INFORMATION
  Report Type: Spontaneous
  Country: US (occurrence: US)
  Receive Date: 20171129
  Receipt Date: 20230518
  Transmission Date: 20230722
  Serious: Yes (Other)
  Sender: FDA-Public Use
  Company Number: US-PFIZER INC-2017502146

PATIENT
  Age: 53 Year
  Sex: Female
  Weight: 61 kg

DRUGS (11)
  1. IBRANCE [Suspect]
     Active Substance: PALBOCICLIB
     Indication: Breast cancer metastatic
     Dosage: 125 MG, CYCLIC (DAILY, 3 WEEKS ON, 1 WEEK OFF/2 WEEKS ON, 2 WEEKS OFF)
     Dates: start: 20150801
  2. IBRANCE [Suspect]
     Active Substance: PALBOCICLIB
     Dosage: 100 MG
  3. IBRANCE [Suspect]
     Active Substance: PALBOCICLIB
     Dosage: 75 MG, CYCLIC ONCE A DAY, ON 3 WEEKS AND OFF ONE WEEK/ONCE A DAY FOR 14 DAYS, OFF 14 DAYS
     Route: 048
     Dates: start: 201508
  4. IBRANCE [Suspect]
     Active Substance: PALBOCICLIB
     Dosage: 75 MG, CYCLIC (DAILY FOR 21 DAYS, OFF 7)
     Dates: start: 20160603
  5. IBRANCE [Suspect]
     Active Substance: PALBOCICLIB
     Dosage: 75 MG, CYCLIC (DAILY FOR 21 DAYS ON AND 7 DAYS OFF)
     Route: 048
     Dates: end: 201809
  6. IBRANCE [Suspect]
     Active Substance: PALBOCICLIB
     Dosage: UNK UNK, CYCLIC, [EVERY OTHER DAY]
     Dates: start: 2020
  7. IBRANCE [Suspect]
     Active Substance: PALBOCICLIB
     Dosage: 75 MG
     Route: 048
     Dates: start: 201508
  8. ANASTROZOLE [Suspect]
     Active Substance: ANASTROZOLE
     Indication: Breast cancer metastatic
     Dosage: UNK
     Route: 048
     Dates: start: 201508
  9. ZOLADEX [Suspect]
     Active Substance: GOSERELIN ACETATE
     Dosage: UNK
     Dates: start: 2020
  10. LUPRON [Concomitant]
     Active Substance: LEUPROLIDE ACETATE
     Dosage: UNK
     Dates: start: 201508, end: 2020
  11. LETROZOLE [Concomitant]
     Active Substance: LETROZOLE
     Dosage: UNK
     Dates: start: 201508, end: 201511

REACTIONS (40)
  - Second primary malignancy [Unknown]
  - Neoplasm [Unknown]
  - Visual acuity reduced [Not Recovered/Not Resolved]
  - Condition aggravated [Not Recovered/Not Resolved]
  - Mental impairment [Unknown]
  - Product storage error [Unknown]
  - Product administration error [Unknown]
  - Off label use [Unknown]
  - Weight increased [Not Recovered/Not Resolved]
  - Malaise [Unknown]
  - Hypersensitivity [Unknown]
  - Dyspnoea [Unknown]
  - Headache [Unknown]
  - Migraine [Unknown]
  - Depressed mood [Unknown]
  - Cough [Unknown]
  - Pain [Not Recovered/Not Resolved]
  - Brain fog [Unknown]
  - Anxiety [Unknown]
  - Insomnia [Unknown]
  - Postmenopause [Unknown]
  - Injection site pain [Not Recovered/Not Resolved]
  - Stomatitis [Recovering/Resolving]
  - Pharyngitis streptococcal [Not Recovered/Not Resolved]
  - Pyrexia [Unknown]
  - Sinusitis [Not Recovered/Not Resolved]
  - Fatigue [Not Recovered/Not Resolved]
  - Erythema [Not Recovered/Not Resolved]
  - Irregular sleep phase [Unknown]
  - Nasopharyngitis [Unknown]
  - Drug hypersensitivity [Unknown]
  - Affective disorder [Unknown]
  - Sinus disorder [Unknown]
  - Abdominal discomfort [Unknown]
  - Illness [Recovering/Resolving]
  - Poor quality sleep [Unknown]
  - Dry throat [Unknown]
  - Sensation of foreign body [Unknown]
  - Eating disorder [Unknown]
  - Speech disorder [Unknown]

NARRATIVE: CASE EVENT DATE: 20161201
